FAERS Safety Report 18933618 (Version 3)
Quarter: 2021Q3

REPORT INFORMATION
  Report Type: Report from Study
  Country: US (occurrence: US)
  Receive Date: 20210224
  Receipt Date: 20210818
  Transmission Date: 20211014
  Serious: Yes (Life-Threatening, Other)
  Sender: FDA-Public Use
  Company Number: US-TAKEDA-2021TUS011417

PATIENT
  Age: 24 Year
  Sex: Female

DRUGS (19)
  1. PARATHYROID HORMONE [Suspect]
     Active Substance: PARATHYROID HORMONE
     Dosage: 100 MICROGRAM, BID
     Route: 058
     Dates: start: 20210813
  2. PARATHYROID HORMONE [Suspect]
     Active Substance: PARATHYROID HORMONE
     Dosage: 100 MICROGRAM, BID
     Route: 058
     Dates: start: 20210813
  3. CALCIUM [Concomitant]
     Active Substance: CALCIUM
     Indication: SYMPTOMATIC TREATMENT
  4. CALCIUM CARBONATE. [Concomitant]
     Active Substance: CALCIUM CARBONATE
     Indication: HYPOCALCAEMIA
     Dosage: 1000 MILLIGRAM, QID
     Route: 065
  5. 25?HYDROXYVITAMIN D3 [Concomitant]
     Active Substance: CALCIFEDIOL ANHYDROUS
     Indication: HYPOCALCAEMIA
     Dosage: UNK UNK, QD
     Route: 065
  6. PARATHYROID HORMONE [Suspect]
     Active Substance: PARATHYROID HORMONE
     Indication: HYPOPARATHYROIDISM
     Dosage: 100 MICROGRAM, QD
     Route: 050
     Dates: start: 20210326
  7. PARATHYROID HORMONE [Suspect]
     Active Substance: PARATHYROID HORMONE
     Indication: HYPOPARATHYROIDISM
     Dosage: 100 MICROGRAM, QD
     Route: 050
     Dates: start: 20210326
  8. STEROIDS [Concomitant]
     Active Substance: UNSPECIFIED INGREDIENT
     Indication: DRUG HYPERSENSITIVITY
     Route: 065
  9. CALCITRIOL. [Concomitant]
     Active Substance: CALCITRIOL
     Indication: HYPOCALCAEMIA
     Dosage: 2.5 MICROGRAM, QID
     Route: 048
  10. 25?HYDROXYVITAMIN D3 [Concomitant]
     Active Substance: CALCIFEDIOL ANHYDROUS
     Indication: SYMPTOMATIC TREATMENT
  11. PARATHYROID HORMONE [Suspect]
     Active Substance: PARATHYROID HORMONE
     Indication: POST PROCEDURAL HYPOPARATHYROIDISM
     Dosage: 100 MICROGRAM, QD
     Route: 058
     Dates: start: 20210311, end: 20210813
  12. PARATHYROID HORMONE [Suspect]
     Active Substance: PARATHYROID HORMONE
     Dosage: 100 MICROGRAM, BID
     Route: 058
     Dates: start: 20210813
  13. PARATHYROID HORMONE [Suspect]
     Active Substance: PARATHYROID HORMONE
     Indication: HYPOPARATHYROIDISM
     Dosage: 100 MICROGRAM, QD
     Route: 050
     Dates: start: 20210326
  14. PARATHYROID HORMONE [Suspect]
     Active Substance: PARATHYROID HORMONE
     Indication: POST PROCEDURAL HYPOPARATHYROIDISM
     Dosage: 100 MICROGRAM, QD
     Route: 058
     Dates: start: 20210311, end: 20210813
  15. CALCIUM [Concomitant]
     Active Substance: CALCIUM
     Indication: HYPOCALCAEMIA
     Dosage: 8 DOSAGE FORM
     Route: 048
  16. CALCIUM CARBONATE. [Concomitant]
     Active Substance: CALCIUM CARBONATE
     Indication: SYMPTOMATIC TREATMENT
  17. CALCITRIOL. [Concomitant]
     Active Substance: CALCITRIOL
     Indication: SYMPTOMATIC TREATMENT
  18. PARATHYROID HORMONE [Suspect]
     Active Substance: PARATHYROID HORMONE
     Indication: POST PROCEDURAL HYPOPARATHYROIDISM
     Dosage: 100 MICROGRAM, QD
     Route: 058
     Dates: start: 20210311, end: 20210813
  19. BENADRYL [Concomitant]
     Active Substance: DIPHENHYDRAMINE HYDROCHLORIDE
     Indication: DRUG HYPERSENSITIVITY
     Dosage: UNK
     Route: 065

REACTIONS (4)
  - Recalled product [Unknown]
  - Drug hypersensitivity [Unknown]
  - Liquid product physical issue [Recovered/Resolved]
  - Hypocalcaemia [Unknown]

NARRATIVE: CASE EVENT DATE: 20210404
